FAERS Safety Report 8965174 (Version 1)
Quarter: 2012Q4

REPORT INFORMATION
  Report Type: 
  Country: FR (occurrence: FR)
  Receive Date: 20121213
  Receipt Date: 20121213
  Transmission Date: 20130627
  Serious: Yes (Hospitalization)
  Sender: FDA-Public Use
  Company Number: FR-BRISTOL-MYERS SQUIBB COMPANY-17177593

PATIENT
  Age: 50 Year
  Sex: Female

DRUGS (4)
  1. TAXOL [Suspect]
     Indication: BREAST CANCER METASTATIC
     Route: 042
     Dates: start: 20120203, end: 20120706
  2. AVASTIN [Suspect]
     Indication: BREAST CANCER METASTATIC
     Dosage: 30jul2012: 1185mg
     Route: 042
     Dates: start: 20120203, end: 20120706
  3. TAMOXIFEN [Suspect]
     Indication: BREAST CANCER METASTATIC
     Dosage: 30Jul2012
     Route: 048
     Dates: start: 20120203
  4. TRIATEC [Concomitant]
     Indication: HYPERTENSION
     Dosage: 11May-22Jun, 22Jun-07Sep2012,07Sep2012 to ong
     Route: 048
     Dates: start: 20120511

REACTIONS (1)
  - Left ventricular failure [Not Recovered/Not Resolved]
